FAERS Safety Report 22855545 (Version 3)
Quarter: 2023Q4

REPORT INFORMATION
  Report Type: Report from Study
  Country: US (occurrence: US)
  Receive Date: 20230823
  Receipt Date: 20231107
  Transmission Date: 20240110
  Serious: No
  Sender: FDA-Public Use
  Company Number: US-002147023-NVSC2023US183308

PATIENT

DRUGS (1)
  1. KESIMPTA [Suspect]
     Active Substance: OFATUMUMAB
     Indication: Relapsing multiple sclerosis
     Dosage: UNK
     Route: 058

REACTIONS (6)
  - Rash pruritic [Unknown]
  - Rash papular [Unknown]
  - Feeling abnormal [Unknown]
  - Herpes zoster [Unknown]
  - Weight decreased [Unknown]
  - Decreased immune responsiveness [Unknown]
